FAERS Safety Report 15673453 (Version 2)
Quarter: 2019Q1

REPORT INFORMATION
  Report Type: Spontaneous
  Country: US (occurrence: US)
  Receive Date: 20181129
  Receipt Date: 20190226
  Transmission Date: 20190417
  Serious: No
  Sender: FDA-Public Use
  Company Number: US-AMAG PHARMACEUTICALS, INC.-AMAG201805978

PATIENT
  Age: 37 Year
  Sex: Female
  Weight: 61.22 kg

DRUGS (5)
  1. CROMOLYN SODUIM [Concomitant]
     Indication: COELIAC DISEASE
     Dosage: 10 MG, QID
     Route: 065
  2. INTRAROSA [Suspect]
     Active Substance: PRASTERONE
     Indication: VULVOVAGINAL PAIN
  3. NALTREXONE [Concomitant]
     Active Substance: NALTREXONE
     Indication: COELIAC DISEASE
     Dosage: 3 MG, UNK
     Route: 065
     Dates: start: 2018
  4. PEPCID [Concomitant]
     Active Substance: FAMOTIDINE
     Indication: PRODUCT USED FOR UNKNOWN INDICATION
     Dosage: 20 MG, BID
     Route: 065
  5. INTRAROSA [Suspect]
     Active Substance: PRASTERONE
     Indication: DYSPAREUNIA
     Dosage: 6.5 MG, QHS
     Route: 067
     Dates: start: 20180830, end: 20181001

REACTIONS (4)
  - Pain in jaw [Unknown]
  - Arthralgia [Unknown]
  - Vulvovaginal pain [Recovered/Resolved]
  - Alopecia [Not Recovered/Not Resolved]

NARRATIVE: CASE EVENT DATE: 2018
